FAERS Safety Report 20919651 (Version 1)
Quarter: 2022Q2

REPORT INFORMATION
  Report Type: Spontaneous
  Country: HR (occurrence: HR)
  Receive Date: 20220606
  Receipt Date: 20220606
  Transmission Date: 20220721
  Serious: Yes (Hospitalization, Other)
  Sender: FDA-Public Use
  Company Number: HR-BAYER-2022A077797

PATIENT
  Age: 42 Year
  Sex: Female

DRUGS (1)
  1. DROSPIRENONE\ETHINYL ESTRADIOL [Suspect]
     Active Substance: DROSPIRENONE\ETHINYL ESTRADIOL
     Route: 048

REACTIONS (17)
  - Pulmonary embolism [None]
  - Respiratory arrest [Recovered/Resolved]
  - Pulseless electrical activity [Recovered/Resolved]
  - Pulseless electrical activity [Recovered/Resolved]
  - Acute kidney injury [None]
  - Cardiac arrest [Recovered/Resolved]
  - Liver injury [None]
  - Deep vein thrombosis [None]
  - Loss of consciousness [None]
  - Bradycardia [Recovered/Resolved]
  - Pyrexia [Recovered/Resolved]
  - Malaise [None]
  - Back pain [Recovered/Resolved]
  - Respiratory rate increased [None]
  - Mydriasis [Recovered/Resolved]
  - Hypertension [None]
  - Urinary tract infection [None]

NARRATIVE: CASE EVENT DATE: 20211101
